FAERS Safety Report 24595000 (Version 2)
Quarter: 2024Q4

REPORT INFORMATION
  Report Type: Spontaneous
  Country: IT (occurrence: IT)
  Receive Date: 20241108
  Receipt Date: 20241125
  Transmission Date: 20250114
  Serious: Yes (Life-Threatening, Hospitalization, Other)
  Sender: DAIICHI
  Company Number: None

PATIENT
  Age: 75 Year
  Sex: Female

DRUGS (4)
  1. ENHERTU [Suspect]
     Active Substance: FAM-TRASTUZUMAB DERUXTECAN-NXKI
     Indication: Metastasis
     Dosage: 390 MG, ONCE EVERY 3 WK
     Route: 042
     Dates: start: 20240821, end: 20240911
  2. DEXAMETHASONE [Concomitant]
     Active Substance: DEXAMETHASONE
     Indication: Adjuvant therapy
     Dosage: 8 MG, BID
     Route: 065
  3. PROPAFENONE [Concomitant]
     Active Substance: PROPAFENONE
     Indication: Atrial fibrillation
     Dosage: 150 MG, TID
     Route: 048
  4. ATENOLOL [Concomitant]
     Active Substance: ATENOLOL
     Indication: Atrial fibrillation
     Dosage: 12.5 MG, QD
     Route: 048

REACTIONS (6)
  - Escherichia sepsis [Recovered/Resolved]
  - Pneumonia [Recovered/Resolved]
  - Pancytopenia [Recovering/Resolving]
  - Gamma-glutamyltransferase increased [Recovering/Resolving]
  - Diarrhoea [Recovered/Resolved]
  - Stomatitis [Recovered/Resolved]

NARRATIVE: CASE EVENT DATE: 20240915
